FAERS Safety Report 14847284 (Version 1)
Quarter: 2018Q2

REPORT INFORMATION
  Report Type: Spontaneous
  Country: US (occurrence: US)
  Receive Date: 20180504
  Receipt Date: 20180504
  Transmission Date: 20180711
  Serious: Yes (Death)
  Sender: FDA-Public Use
  Company Number: PHEH2018US016953

PATIENT
  Age: 18 Year
  Sex: Male

DRUGS (1)
  1. PROMACTA [Suspect]
     Active Substance: ELTROMBOPAG OLAMINE
     Indication: BRAIN NEOPLASM
     Dosage: 75 MG, QD
     Route: 048
     Dates: start: 20170218

REACTIONS (1)
  - Death [Fatal]

NARRATIVE: CASE EVENT DATE: 20180420
